FAERS Safety Report 17200413 (Version 2)
Quarter: 2020Q1

REPORT INFORMATION
  Report Type: Spontaneous
  Country: US (occurrence: US)
  Receive Date: 20191226
  Receipt Date: 20200308
  Transmission Date: 20200409
  Serious: Yes (Other)
  Sender: FDA-Public Use
  Company Number: US-TEVA-2019-US-1158046

PATIENT
  Age: 70 Year
  Sex: Female

DRUGS (1)
  1. EPINEPHRINE. [Suspect]
     Active Substance: EPINEPHRINE
     Indication: URTICARIA
     Dosage: STRENGTH: 0.3 MG / 0.3 ML
     Route: 065

REACTIONS (4)
  - Drug ineffective [Unknown]
  - Hypersensitivity [Unknown]
  - Device malfunction [Unknown]
  - Incorrect dose administered [Unknown]

NARRATIVE: CASE EVENT DATE: 20191216
